FAERS Safety Report 23046160 (Version 1)
Quarter: 2023Q4

REPORT INFORMATION
  Report Type: Spontaneous
  Country: US (occurrence: US)
  Receive Date: 20231009
  Receipt Date: 20231009
  Transmission Date: 20240109
  Serious: No
  Sender: FDA-Public Use
  Company Number: US-HORIZON THERAPEUTICS-HZN-2023-006531

PATIENT

DRUGS (8)
  1. KRYSTEXXA [Suspect]
     Active Substance: PEGLOTICASE
     Indication: Product used for unknown indication
     Dosage: FIRST INFUSION, EVERY 2 WEEKS
     Route: 042
  2. KRYSTEXXA [Suspect]
     Active Substance: PEGLOTICASE
     Dosage: SECOND INFUSION, EVERY 2 WEEKS
     Route: 042
  3. KRYSTEXXA [Suspect]
     Active Substance: PEGLOTICASE
     Dosage: THIRD INFUSION, EVERY 2 WEEKS
     Route: 042
  4. KRYSTEXXA [Suspect]
     Active Substance: PEGLOTICASE
     Dosage: FOURTH INFUSION, EVERY 2 WEEKS
     Route: 042
  5. KRYSTEXXA [Suspect]
     Active Substance: PEGLOTICASE
     Dosage: FIFTH INFUSION, EVERY 2 WEEKS
     Route: 042
  6. KRYSTEXXA [Suspect]
     Active Substance: PEGLOTICASE
     Dosage: SIX INFUSION, EVERY 2 WEEKS
     Route: 042
  7. KRYSTEXXA [Suspect]
     Active Substance: PEGLOTICASE
     Dosage: SEVENTH INFUSION, EVERY 2 WEEKS
     Route: 042
  8. METHOTREXATE [Suspect]
     Active Substance: METHOTREXATE
     Indication: Product used for unknown indication
     Dosage: 15 MG
     Route: 065

REACTIONS (2)
  - Urticaria [Recovered/Resolved]
  - Blood uric acid increased [Unknown]
